FAERS Safety Report 5206212-1 (Version None)
Quarter: 2007Q1

REPORT INFORMATION
  Report Type: 
  Country: None (occurrence: None)
  Receive Date: 20070111
  Receipt Date: 20070108
  Transmission Date: 20070707
  Serious: Yes (Hospitalization)
  Sender: FDA-Public Use
  Company Number: FR-BRISTOL-MYERS SQUIBB COMPANY-12313599

PATIENT
  Age: 30 Year
  Sex: Male

DRUGS (4)
  1. AMPHOTERICIN B [Suspect]
  2. CEFEPIME [Suspect]
  3. NETILMICIN SULFATE [Suspect]
  4. AMPHOTERICIN B [Suspect]

REACTIONS (5)
  - COMA [None]
  - METABOLIC ACIDOSIS [None]
  - NEPHROGENIC DIABETES INSIPIDUS [None]
  - NEUTROPENIA [None]
  - RENAL FAILURE ACUTE [None]
